FAERS Safety Report 5833299-5 (Version None)
Quarter: 2008Q3

REPORT INFORMATION
  Report Type: 
  Country: None (occurrence: None)
  Receive Date: 20080805
  Receipt Date: 20080725
  Transmission Date: 20090109
  Serious: Yes (Other)
  Sender: FDA-Public Use
  Company Number: DE-JNJFOC-20080400110

PATIENT
  Age: 57 Year
  Sex: Male

DRUGS (1)
  1. REMICADE [Suspect]
     Indication: COLITIS ULCERATIVE
     Route: 042

REACTIONS (9)
  - ANOREXIA [None]
  - CARDIAC FAILURE [None]
  - DIARRHOEA [None]
  - FAECALOMA [None]
  - MUSCULAR WEAKNESS [None]
  - ORAL HERPES [None]
  - PERONEAL NERVE PALSY [None]
  - POLYNEUROPATHY [None]
  - VOMITING [None]
